FAERS Safety Report 6740393-3 (Version None)
Quarter: 2010Q2

REPORT INFORMATION
  Report Type: 
  Country: None (occurrence: None)
  Receive Date: 20100521
  Receipt Date: 20100510
  Transmission Date: 20101027
  Serious: Yes (Life-Threatening, Hospitalization)
  Sender: FDA-Public Use
  Company Number: WAES 0804FRA00022

PATIENT
  Age: 54 Year
  Sex: Female

DRUGS (1)
  1. CAP VORINOSTAT [Suspect]
     Indication: NON-SMALL CELL LUNG CANCER
     Dosage: 400 MG/ DAILY
     Route: 048
     Dates: start: 20080317, end: 20080330

REACTIONS (8)
  - DEHYDRATION [None]
  - EPISTAXIS [None]
  - FEBRILE NEUTROPENIA [None]
  - GENERAL PHYSICAL HEALTH DETERIORATION [None]
  - LYMPHOCYTE COUNT DECREASED [None]
  - PLEURISY [None]
  - THROMBOCYTOPENIA [None]
  - WHITE BLOOD CELL COUNT DECREASED [None]
